FAERS Safety Report 22046336 (Version 1)
Quarter: 2023Q1

REPORT INFORMATION
  Report Type: Spontaneous
  Country: US (occurrence: US)
  Receive Date: 20230228
  Receipt Date: 20230228
  Transmission Date: 20230417
  Serious: Yes (Hospitalization)
  Sender: FDA-Public Use
  Company Number: US-TEVA-2023-US-2859587

PATIENT
  Age: 62 Year
  Sex: Male

DRUGS (1)
  1. ROSUVASTATIN [Suspect]
     Active Substance: ROSUVASTATIN
     Indication: Hyperlipidaemia
     Dosage: 40 MILLIGRAM DAILY;
     Route: 065

REACTIONS (3)
  - Myopathy [Recovering/Resolving]
  - Chromaturia [Recovering/Resolving]
  - Escherichia urinary tract infection [Unknown]
